FAERS Safety Report 25411792 (Version 1)
Quarter: 2025Q2

REPORT INFORMATION
  Report Type: Spontaneous
  Country: TR (occurrence: TR)
  Receive Date: 20250609
  Receipt Date: 20250609
  Transmission Date: 20250717
  Serious: Yes (Other)
  Sender: MACLEODS
  Company Number: TR-MACLEODS PHARMA-MAC2025053400

PATIENT

DRUGS (3)
  1. METHIMAZOLE [Suspect]
     Active Substance: METHIMAZOLE
     Indication: Hyperthyroidism
     Route: 065
  2. METHIMAZOLE [Suspect]
     Active Substance: METHIMAZOLE
     Dosage: WITHIN 6 MONTHS, DOSE WAS REDUCED
     Route: 065
  3. METHIMAZOLE [Suspect]
     Active Substance: METHIMAZOLE
     Dosage: DOSE WAS REDUCED FROM 5 MG TO 2.5 MG
     Route: 065

REACTIONS (2)
  - Thrombocytopenia [Recovering/Resolving]
  - Iron deficiency [Unknown]
